FAERS Safety Report 6384065-6 (Version None)
Quarter: 2009Q3

REPORT INFORMATION
  Report Type: 
  Country: None (occurrence: None)
  Receive Date: 20090929
  Receipt Date: 20090916
  Transmission Date: 20100115
  Serious: Yes (Hospitalization)
  Sender: FDA-Public Use
  Company Number: 8052380

PATIENT
  Age: 42 Year
  Sex: Female

DRUGS (4)
  1. KEPPRA [Suspect]
     Indication: EPILEPSY
     Dosage: PO
     Route: 048
     Dates: start: 20051101, end: 20060122
  2. KEPPRA [Suspect]
     Indication: EPILEPSY
     Dosage: 2/D PO
     Route: 048
     Dates: start: 20060123, end: 20090401
  3. KEPPRA [Suspect]
     Indication: EPILEPSY
     Dosage: PO
     Route: 048
     Dates: start: 20090401, end: 20090701
  4. KEPPRA [Suspect]
     Indication: EPILEPSY
     Dosage: PO
     Route: 048
     Dates: start: 20090701, end: 20090819

REACTIONS (7)
  - BRONCHIAL DISORDER [None]
  - INCORRECT DOSE ADMINISTERED [None]
  - MENORRHAGIA [None]
  - PANCYTOPENIA [None]
  - PYREXIA [None]
  - STRESS AT WORK [None]
  - TREATMENT NONCOMPLIANCE [None]
